FAERS Safety Report 12695311 (Version 1)
Quarter: 2016Q3

REPORT INFORMATION
  Report Type: Spontaneous
  Country: US (occurrence: US)
  Receive Date: 20160829
  Receipt Date: 20160829
  Transmission Date: 20161109
  Serious: Yes (Other)
  Sender: FDA-Public Use
  Company Number: US-UCBSA-2016032882

PATIENT
  Sex: Female

DRUGS (4)
  1. BRIVIACT [Suspect]
     Active Substance: BRIVARACETAM
     Dosage: 150 MG, 2X/DAY (BID)
  2. ZONEGRAN [Concomitant]
     Active Substance: ZONISAMIDE
     Indication: PRODUCT USED FOR UNKNOWN INDICATION
     Dosage: UNK
  3. ONFI [Concomitant]
     Active Substance: CLOBAZAM
     Indication: PRODUCT USED FOR UNKNOWN INDICATION
     Dosage: UNK
  4. BRIVIACT [Suspect]
     Active Substance: BRIVARACETAM
     Indication: PRODUCT USED FOR UNKNOWN INDICATION
     Dosage: 50 MG, 2X/DAY (BID)

REACTIONS (3)
  - Status epilepticus [Unknown]
  - Overdose [Unknown]
  - Off label use [Unknown]
